FAERS Safety Report 9482715 (Version 1)
Quarter: 2013Q3

REPORT INFORMATION
  Report Type: Spontaneous
  Country: PT (occurrence: PT)
  Receive Date: 20130828
  Receipt Date: 20130828
  Transmission Date: 20140515
  Serious: Yes (Other)
  Sender: FDA-Public Use
  Company Number: PT-009507513-1308PRT011497

PATIENT
  Age: 55 Year
  Sex: Male
  Weight: 60 kg

DRUGS (2)
  1. ESMERON [Suspect]
     Indication: ANAESTHESIA
     Dosage: INCREASED UNTIL 150 MG
     Dates: start: 20130822, end: 20130822
  2. CYANOCOBALAMIN [Concomitant]

REACTIONS (5)
  - Drug ineffective [Unknown]
  - Overdose [Unknown]
  - Incorrect product storage [Unknown]
  - Adverse event [Unknown]
  - Haemodynamic instability [Recovered/Resolved]
